FAERS Safety Report 5801256-0 (Version None)
Quarter: 2008Q3

REPORT INFORMATION
  Report Type: 
  Country: None (occurrence: None)
  Receive Date: 20080707
  Receipt Date: 20080625
  Transmission Date: 20090109
  Serious: Yes (Other)
  Sender: FDA-Public Use
  Company Number: JP-JNJFOC-20080700313

PATIENT
  Age: 93 Year
  Sex: Female

DRUGS (3)
  1. ITRIZOLE [Suspect]
     Indication: ONYCHOMYCOSIS
     Dosage: PULSE THERAPY
     Route: 048
  2. DEPAS [Suspect]
     Indication: DRUG USE FOR UNKNOWN INDICATION
     Route: 048
  3. SERMION [Concomitant]
     Route: 048

REACTIONS (3)
  - FEELING ABNORMAL [None]
  - INSOMNIA [None]
  - MALAISE [None]
